FAERS Safety Report 16944114 (Version 3)
Quarter: 2019Q4

REPORT INFORMATION
  Report Type: Spontaneous
  Country: US (occurrence: US)
  Receive Date: 20191022
  Receipt Date: 20191111
  Transmission Date: 20200122
  Serious: No
  Sender: FDA-Public Use
  Company Number: US-HORIZON-KRY-0888-2019

PATIENT
  Sex: Male

DRUGS (2)
  1. METHOTREXATE. [Concomitant]
     Active Substance: METHOTREXATE
  2. KRYSTEXXA [Suspect]
     Active Substance: PEGLOTICASE
     Indication: GOUT
     Dosage: 8MG EVERY 2 WEEKS
     Route: 042

REACTIONS (3)
  - Inappropriate schedule of product administration [Unknown]
  - Pruritus [Recovered/Resolved]
  - Infusion related reaction [Unknown]
